FAERS Safety Report 8895873 (Version 4)
Quarter: 2013Q2

REPORT INFORMATION
  Report Type: Spontaneous
  Country: US (occurrence: US)
  Receive Date: 20121108
  Receipt Date: 20130507
  Transmission Date: 20140414
  Serious: Yes (Hospitalization, Disabling, Other)
  Sender: FDA-Public Use
  Company Number: US-009507513-1210USA012658

PATIENT
  Sex: Female

DRUGS (4)
  1. FOSAMAX [Suspect]
     Dosage: 70 MG, UNK
     Route: 048
     Dates: start: 2001, end: 200705
  2. FOSAMAX [Suspect]
     Route: 048
  3. SYNTHROID [Concomitant]
     Indication: HYPOTHYROIDISM
     Dosage: 88 MICROGRAM, QD
     Route: 048
     Dates: start: 1960
  4. VITAMINS (UNSPECIFIED) [Concomitant]
     Dosage: 1 DF, QD
     Route: 048
     Dates: start: 2002

REACTIONS (21)
  - Femur fracture [Not Recovered/Not Resolved]
  - Open reduction of fracture [Unknown]
  - Appendicectomy [Unknown]
  - Hip arthroplasty [Unknown]
  - Anaemia postoperative [Unknown]
  - Escherichia urinary tract infection [Unknown]
  - Hypertension [Unknown]
  - Hypercholesterolaemia [Unknown]
  - Osteoarthritis [Not Recovered/Not Resolved]
  - Anaemia [Unknown]
  - Anaemia [Unknown]
  - Hiatus hernia [Unknown]
  - Gastritis erosive [Unknown]
  - Large intestine polyp [Unknown]
  - Diverticulum [Unknown]
  - Haemorrhoids [Unknown]
  - Ovarian cyst [Unknown]
  - Uterine dilation and curettage [Unknown]
  - Arthritis [Unknown]
  - Gastrooesophageal reflux disease [Unknown]
  - Diarrhoea [Unknown]
